FAERS Safety Report 7874849-7 (Version None)
Quarter: 2011Q4

REPORT INFORMATION
  Report Type: 
  Country: None (occurrence: None)
  Receive Date: 20111031
  Receipt Date: 20111027
  Transmission Date: 20120403
  Serious: Yes (Other)
  Sender: FDA-Public Use
  Company Number: US-JNJFOC-20111012233

PATIENT
  Age: 29 Year
  Sex: Female
  Weight: 72.58 kg

DRUGS (1)
  1. STELARA [Suspect]
     Indication: PSORIASIS
     Route: 058
     Dates: start: 20090101

REACTIONS (6)
  - FATIGUE [None]
  - SINUS CONGESTION [None]
  - SCAB [None]
  - DRUG EFFECT DECREASED [None]
  - WHITE BLOOD CELL COUNT ABNORMAL [None]
  - OROPHARYNGEAL PAIN [None]
